FAERS Safety Report 6710699-2 (Version None)
Quarter: 2010Q2

REPORT INFORMATION
  Report Type: 
  Country: None (occurrence: None)
  Receive Date: 20100504
  Receipt Date: 20100504
  Transmission Date: 20101027
  Serious: Yes (Other)
  Sender: FDA-Public Use
  Company Number: None

PATIENT
  Age: 3 Year
  Sex: Male
  Weight: 15.8759 kg

DRUGS (2)
  1. CHILDREN'S MOTRIN [Suspect]
     Indication: ORAL PAIN
     Dates: start: 20100430, end: 20100501
  2. CHILDREN'S MOTRIN [Suspect]
     Indication: PYREXIA
     Dates: start: 20100430, end: 20100501

REACTIONS (5)
  - CRYING [None]
  - INITIAL INSOMNIA [None]
  - ORAL PAIN [None]
  - POOR QUALITY DRUG ADMINISTERED [None]
  - PRODUCT QUALITY ISSUE [None]
